FAERS Safety Report 13560947 (Version 4)
Quarter: 2018Q2

REPORT INFORMATION
  Report Type: Spontaneous
  Country: US (occurrence: US)
  Receive Date: 20170518
  Receipt Date: 20180619
  Transmission Date: 20180711
  Serious: No
  Sender: FDA-Public Use
  Company Number: US-PFIZER INC-2017211918

PATIENT
  Age: 6 Year
  Sex: Female
  Weight: 18 kg

DRUGS (6)
  1. FLUDROCORTISONE [Concomitant]
     Active Substance: FLUDROCORTISONE
     Dosage: 0.1 MG, 1X/DAY
  2. GENOTROPIN [Suspect]
     Active Substance: SOMATROPIN
     Indication: GROWTH HORMONE DEFICIENCY
     Dosage: UNK
     Dates: start: 2015
  3. GENOTROPIN [Suspect]
     Active Substance: SOMATROPIN
     Indication: SEPTO-OPTIC DYSPLASIA
     Dosage: 0.7 MG, DAILY (7 DAYS/WK)
     Dates: start: 201701
  4. HYDROCORTISONE. [Concomitant]
     Active Substance: HYDROCORTISONE
     Dosage: UNK (IT WAS FULL ONE IN THE MORNING AND HALF AT THREE AND QUARTER AT BED TIME)
  5. LEVOTHYROXINE. [Concomitant]
     Active Substance: LEVOTHYROXINE
     Dosage: 25 UG
  6. SOLU-CORTEF [Concomitant]
     Active Substance: HYDROCORTISONE SODIUM SUCCINATE
     Dosage: 50 ML, AS NEEDED

REACTIONS (3)
  - Mental disorder [Unknown]
  - Emotional disorder [Unknown]
  - Adrenal disorder [Unknown]

NARRATIVE: CASE EVENT DATE: 20170425
